FAERS Safety Report 5545211-7 (Version None)
Quarter: 2007Q4

REPORT INFORMATION
  Report Type: 
  Country: None (occurrence: None)
  Receive Date: 20071123
  Receipt Date: 20070226
  Transmission Date: 20080405
  Serious: Yes (Other)
  Sender: FDA-Public Use
  Company Number: US-JNJFOC-20070206475

PATIENT
  Age: 33 Year
  Sex: Male

DRUGS (4)
  1. LEVAQUIN [Suspect]
     Indication: PROPHYLAXIS
     Dates: start: 20061122, end: 20061201
  2. LEXAPRO [Suspect]
     Indication: DEPRESSION
     Dosage: 10 MG, 1 IN 1 DAY, ORAL
     Route: 048
     Dates: start: 20061001
  3. CHEMOTHERAPY (ANTINEOPLASTIC AGENTS) UNSPECIFIED [Suspect]
     Indication: B-CELL LYMPHOMA
     Dates: start: 20060601, end: 20061201
  4. RITUXAN [Suspect]
     Indication: B-CELL LYMPHOMA
     Dates: start: 20060601, end: 20061201

REACTIONS (1)
  - WHITE BLOOD CELL COUNT DECREASED [None]
